FAERS Safety Report 5934358-9 (Version None)
Quarter: 2008Q4

REPORT INFORMATION
  Report Type: 
  Country: None (occurrence: None)
  Receive Date: 20081029
  Receipt Date: 20081021
  Transmission Date: 20090506
  Serious: Yes (Hospitalization, Other)
  Sender: FDA-Public Use
  Company Number: PHEH2005US01512

PATIENT
  Sex: Female
  Weight: 163 kg

DRUGS (4)
  1. AREDIA [Suspect]
     Indication: RESORPTION BONE INCREASED
     Dosage: MONTHLY
     Dates: end: 20030909
  2. ZOMETA [Suspect]
     Indication: BREAST CANCER
  3. TAMOXIFEN CITRATE [Concomitant]
  4. PROCRIT [Concomitant]

REACTIONS (13)
  - ANXIETY [None]
  - BONE DISORDER [None]
  - DENTAL FISTULA [None]
  - FALL [None]
  - GENERAL PHYSICAL CONDITION ABNORMAL [None]
  - INJURY [None]
  - LIMB INJURY [None]
  - OSTEONECROSIS [None]
  - PAIN [None]
  - PAIN IN JAW [None]
  - SWELLING FACE [None]
  - TOOTH EXTRACTION [None]
  - WOUND DRAINAGE [None]
